FAERS Safety Report 10017748 (Version 1)
Quarter: 2014Q1

REPORT INFORMATION
  Report Type: Spontaneous
  Country: US (occurrence: US)
  Receive Date: 20140318
  Receipt Date: 20140318
  Transmission Date: 20141002
  Serious: Yes (Other)
  Sender: FDA-Public Use
  Company Number: US-BRISTOL-MYERS SQUIBB COMPANY-18776278

PATIENT
  Age: 70 Year
  Sex: Male

DRUGS (4)
  1. ERBITUX [Suspect]
     Indication: HEAD AND NECK CANCER
     Dates: start: 20130408
  2. DEXAMETHASONE [Concomitant]
     Indication: PREMEDICATION
  3. DIPHENHYDRAMINE [Concomitant]
     Indication: PREMEDICATION
  4. FAMOTIDINE [Concomitant]
     Indication: PREMEDICATION

REACTIONS (4)
  - Pruritus [Unknown]
  - Blood pressure decreased [Unknown]
  - Dyspnoea [Unknown]
  - Anxiety [Unknown]
